FAERS Safety Report 4922270-3 (Version None)
Quarter: 2006Q1

REPORT INFORMATION
  Report Type: 
  Country: None (occurrence: None)
  Receive Date: 20060224
  Receipt Date: 20050718
  Transmission Date: 20060701
  Serious: Yes (Hospitalization)
  Sender: FDA-Public Use
  Company Number: US-MERCK-0507USA02896

PATIENT
  Age: 54 Year
  Sex: Male
  Weight: 102 kg

DRUGS (9)
  1. VIOXX [Suspect]
     Indication: ARTHRITIS
     Route: 048
     Dates: start: 20001005, end: 20020109
  2. VIOXX [Suspect]
     Route: 048
  3. VIOXX [Suspect]
     Route: 048
     Dates: start: 20000523, end: 20000101
  4. VIOXX [Suspect]
     Route: 048
     Dates: start: 20020110, end: 20040713
  5. ACCUPRIL [Concomitant]
     Route: 065
  6. NORVASC [Concomitant]
     Route: 065
  7. NEXIUM [Concomitant]
     Route: 065
  8. ALBUTEROL [Concomitant]
     Route: 065
  9. SOMA [Concomitant]
     Route: 065

REACTIONS (4)
  - CEREBROVASCULAR ACCIDENT [None]
  - ERECTILE DYSFUNCTION [None]
  - HYPERTENSION [None]
  - RENAL FAILURE [None]
